FAERS Safety Report 6902179-6 (Version None)
Quarter: 2010Q3

REPORT INFORMATION
  Report Type: 
  Country: None (occurrence: None)
  Receive Date: 20100803
  Receipt Date: 20080425
  Transmission Date: 20110219
  Serious: No
  Sender: FDA-Public Use
  Company Number: US-PFIZER INC-2008033634

PATIENT
  Age: 57 Year
  Sex: Female
  Weight: 86.4 kg

DRUGS (8)
  1. LYRICA [Suspect]
     Indication: NEUROPATHY PERIPHERAL
  2. NEURONTIN [Suspect]
     Indication: NEUROPATHY PERIPHERAL
  3. PREMPRO [Concomitant]
  4. ZIAC [Concomitant]
  5. BENICAR [Concomitant]
  6. LIPITOR [Concomitant]
     Indication: BLOOD CHOLESTEROL INCREASED
  7. VICODIN [Concomitant]
  8. VITAMIN TAB [Concomitant]

REACTIONS (2)
  - DRUG INEFFECTIVE [None]
  - GLUCOSE TOLERANCE IMPAIRED [None]
